FAERS Safety Report 9298187 (Version 1)
Quarter: 2013Q2

REPORT INFORMATION
  Report Type: Spontaneous
  Country: BR (occurrence: BR)
  Receive Date: 20130520
  Receipt Date: 20130520
  Transmission Date: 20140414
  Serious: Yes (Other)
  Sender: FDA-Public Use
  Company Number: BR-AMGEN-BRASP2013034912

PATIENT
  Age: 31 Year
  Sex: Female
  Weight: 67 kg

DRUGS (2)
  1. ENBREL [Suspect]
     Indication: RHEUMATOID ARTHRITIS
     Dosage: 50 MG, 1X/WEEK
     Route: 058
     Dates: start: 20130204, end: 20130225
  2. EUTHYROX [Concomitant]
     Indication: THYROID DISORDER
     Dosage: 100 MG, UNK

REACTIONS (3)
  - Immunodeficiency [Unknown]
  - Hyperpyrexia [Unknown]
  - Throat tightness [Unknown]
